FAERS Safety Report 25981735 (Version 1)
Quarter: 2025Q4

REPORT INFORMATION
  Report Type: Report from Study
  Country: US (occurrence: US)
  Receive Date: 20251031
  Receipt Date: 20251031
  Transmission Date: 20260119
  Serious: Yes (Other)
  Sender: ABBVIE
  Company Number: US-ABBVIE-6521436

PATIENT
  Sex: Female

DRUGS (1)
  1. SKYRIZI [Suspect]
     Active Substance: RISANKIZUMAB-RZAA
     Indication: Psoriasis
     Route: 058
     Dates: start: 2019

REACTIONS (3)
  - Deafness unilateral [Not Recovered/Not Resolved]
  - Ear swelling [Not Recovered/Not Resolved]
  - Psoriasis [Not Recovered/Not Resolved]
